FAERS Safety Report 24531488 (Version 1)
Quarter: 2024Q4

REPORT INFORMATION
  Report Type: Report from Study
  Country: US (occurrence: US)
  Receive Date: 20241022
  Receipt Date: 20241022
  Transmission Date: 20250114
  Serious: No
  Sender: ROCHE
  Company Number: US-ROCHE-3526326

PATIENT
  Age: 23 Year
  Sex: Female

DRUGS (1)
  1. PULMOZYME [Suspect]
     Active Substance: DORNASE ALFA
     Indication: Cystic fibrosis
     Dosage: AMPUL, SOLUTION, NON-ORAL, NEBULIZE THE CONTENTS OF 1 VIAL(S) DAILY (ONE VIAL CONTAINS : 2.5 MG/2.5
     Route: 065

REACTIONS (1)
  - Gait disturbance [Unknown]
